FAERS Safety Report 5877217-2 (Version None)
Quarter: 2008Q3

REPORT INFORMATION
  Report Type: 
  Country: None (occurrence: None)
  Receive Date: 20080910
  Receipt Date: 20080902
  Transmission Date: 20090109
  Serious: Yes (Other)
  Sender: FDA-Public Use
  Company Number: SE-PFIZER INC-2008068628

PATIENT
  Sex: Male
  Weight: 96 kg

DRUGS (5)
  1. GENOTROPIN [Suspect]
     Indication: HYPOPITUITARISM
     Dosage: DAILY DOSE:.3MG-FREQ:DAILY
     Dates: start: 19940830, end: 20080812
  2. TESTOSTERONE [Suspect]
     Indication: HYPOGONADISM
     Dosage: DAILY DOSE:50MG
     Dates: start: 20060201, end: 20080812
  3. HYDROCORTISONE 10MG TAB [Concomitant]
     Indication: BLOOD CORTISOL DECREASED
     Dosage: DAILY DOSE:20MG
     Dates: start: 20030401
  4. LEVOTHYROXINE SODIUM [Concomitant]
     Indication: HYPOTHYROIDISM
     Dosage: DAILY DOSE:.15MG
     Dates: start: 20000114
  5. MECILLINAM [Concomitant]

REACTIONS (1)
  - PROSTATE CANCER [None]
